FAERS Safety Report 10021892 (Version 1)
Quarter: 2014Q1

REPORT INFORMATION
  Report Type: Spontaneous
  Country: US (occurrence: None)
  Receive Date: 20140318
  Receipt Date: 20140318
  Transmission Date: 20141002
  Serious: Yes (Life-Threatening, Hospitalization)
  Sender: FDA-Public Use
  Company Number: None

PATIENT
  Age: 52 Year
  Sex: Female
  Weight: 111 kg

DRUGS (5)
  1. RISPERDAL CONSTA [Suspect]
     Indication: SCHIZOPHRENIA, PARANOID TYPE
     Dosage: ONE SYRINGE EVERY 2 WEEKS INTRAMUSCULAR
     Route: 030
  2. LEVOTHYROXINE [Concomitant]
  3. ALBUTEROL INHALER [Concomitant]
  4. METFORMIN [Concomitant]
  5. VALSARTAN [Concomitant]

REACTIONS (3)
  - Hypothermia [None]
  - Mental status changes [None]
  - Bradycardia [None]
